FAERS Safety Report 4500196-7 (Version None)
Quarter: 2004Q4

REPORT INFORMATION
  Report Type: 
  Country: None (occurrence: None)
  Receive Date: 20040927
  Receipt Date: 20040713
  Transmission Date: 20050328
  Serious: No
  Sender: FDA-Public Use
  Company Number: USA040772597

PATIENT
  Sex: Female

DRUGS (1)
  1. STRATTERA [Suspect]

REACTIONS (1)
  - SKIN DISCOLOURATION [None]
